FAERS Safety Report 8888657 (Version 2)
Quarter: 2012Q4

REPORT INFORMATION
  Report Type: 
  Country: US (occurrence: US)
  Receive Date: 20121106
  Receipt Date: 20121123
  Transmission Date: 20130627
  Serious: Yes (Death)
  Sender: FDA-Public Use
  Company Number: US-009507513-1211USA001353

PATIENT
  Age: 49 Year
  Sex: Male

DRUGS (1)
  1. ISENTRESS [Suspect]
     Dosage: 400 mg, bid
     Route: 048

REACTIONS (1)
  - Death [Fatal]
